FAERS Safety Report 8530076-1 (Version None)
Quarter: 2012Q3

REPORT INFORMATION
  Report Type: 
  Country: None (occurrence: None)
  Receive Date: 20120723
  Receipt Date: 20120713
  Transmission Date: 20120928
  Serious: Yes (Hospitalization)
  Sender: FDA-Public Use
  Company Number: US-BAYER-2011-028733

PATIENT
  Age: 24 Year
  Sex: Female
  Weight: 72.562 kg

DRUGS (11)
  1. HYDROCODONE BITARTRATE + ACETAMINOPHEN [Concomitant]
  2. ZYRTEC [Concomitant]
  3. DROSPIRENONE AND ETHINYL ESTRADIOL [Suspect]
     Indication: CONTRACEPTION
     Dosage: UNK
     Dates: start: 20090501, end: 20091201
  4. TRAMADOL HYDROCHLORIDE [Concomitant]
     Dosage: 50 MG, UNK
  5. CLINDAMYCIN [Concomitant]
  6. FLUTICASONE PROPIONATE [Concomitant]
     Indication: SINUSITIS
     Dosage: UNK
     Route: 045
     Dates: start: 20080101
  7. YAZ [Suspect]
     Indication: CONTRACEPTION
     Dosage: UNK
     Dates: start: 20090501, end: 20091201
  8. YASMIN [Suspect]
     Indication: CONTRACEPTION
     Dosage: UNK
     Dates: start: 20090501, end: 20091201
  9. NUVARING [Concomitant]
     Dosage: UNK
     Dates: start: 20091201, end: 20100101
  10. PROMETHAZINE [Concomitant]
     Dosage: 12.5 MG, UNK
  11. NAPROXEN [Concomitant]
     Indication: DYSMENORRHOEA
     Dosage: UNK
     Dates: start: 20080101

REACTIONS (6)
  - PAIN [None]
  - SCAR [None]
  - GALLBLADDER INJURY [None]
  - CHOLECYSTITIS CHRONIC [None]
  - EMOTIONAL DISTRESS [None]
  - INJURY [None]
